FAERS Safety Report 13535128 (Version 1)
Quarter: 2017Q2

REPORT INFORMATION
  Report Type: Spontaneous
  Country: US (occurrence: US)
  Receive Date: 20170510
  Receipt Date: 20170510
  Transmission Date: 20170830
  Serious: Yes (Hospitalization)
  Sender: FDA-Public Use
  Company Number: None

PATIENT
  Age: 73 Year
  Sex: Female
  Weight: 67.95 kg

DRUGS (11)
  1. PANTOPRAZOLE [Concomitant]
     Active Substance: PANTOPRAZOLE
  2. HYDROCODONE-ACETAMINOPHEN [Concomitant]
     Active Substance: ACETAMINOPHEN\HYDROCODONE
  3. CITALOPRAM [Concomitant]
     Active Substance: CITALOPRAM HYDROBROMIDE
  4. ROSUVASTATIN. [Concomitant]
     Active Substance: ROSUVASTATIN
  5. DENOSUMAB [Concomitant]
     Active Substance: DENOSUMAB
  6. PROCHLORPERAZINE. [Concomitant]
     Active Substance: PROCHLORPERAZINE
  7. ZOLPIDEM [Concomitant]
     Active Substance: ZOLPIDEM\ZOLPIDEM TARTRATE
  8. ONDANSETRON [Concomitant]
     Active Substance: ONDANSETRON
  9. RIBOCICLIB [Suspect]
     Active Substance: RIBOCICLIB
     Indication: BREAST CANCER METASTATIC
     Route: 048
     Dates: start: 20170327, end: 20170424
  10. HYDROCHLOROTHIAZIDE AND LISINOPRIL [Concomitant]
     Active Substance: HYDROCHLOROTHIAZIDE\LISINOPRIL
  11. LETROZOLE. [Concomitant]
     Active Substance: LETROZOLE

REACTIONS (10)
  - Nausea [None]
  - Vomiting [None]
  - Eructation [None]
  - Hepatic lesion [None]
  - Blood alkaline phosphatase increased [None]
  - Dyspepsia [None]
  - Hypophagia [None]
  - Hyperbilirubinaemia [None]
  - Hepatic cyst [None]
  - Transaminases increased [None]

NARRATIVE: CASE EVENT DATE: 20170424
